FAERS Safety Report 5704932-3 (Version None)
Quarter: 2008Q2

REPORT INFORMATION
  Report Type: 
  Country: None (occurrence: None)
  Receive Date: 20080414
  Receipt Date: 20080314
  Transmission Date: 20081010
  Serious: No
  Sender: FDA-Public Use
  Company Number: US-BAYER-200810817NA

PATIENT
  Age: 38 Year
  Sex: Female
  Weight: 84 kg

DRUGS (5)
  1. MIRENA [Suspect]
     Indication: CONTRACEPTION
     Route: 048
     Dates: start: 20070901
  2. LEXAPRO [Concomitant]
  3. ALLEGRA [Concomitant]
  4. NEXIUM [Concomitant]
  5. PROBIOTICS (NOS) [Concomitant]

REACTIONS (3)
  - AMENORRHOEA [None]
  - FUNGAL INFECTION [None]
  - VAGINITIS BACTERIAL [None]
